FAERS Safety Report 7027764-5 (Version None)
Quarter: 2010Q4

REPORT INFORMATION
  Report Type: 
  Country: None (occurrence: None)
  Receive Date: 20101004
  Receipt Date: 20101004
  Transmission Date: 20110411
  Serious: No
  Sender: FDA-Public Use
  Company Number: None

PATIENT
  Sex: Male

DRUGS (2)
  1. ALLOPURINOL [Suspect]
     Dosage: 300 MG 1/D PO
     Route: 048
  2. ALLOPURINOL 100MG TAB [Suspect]
     Dosage: 100 MG 1/2 TAB QD PO
     Route: 048

REACTIONS (1)
  - URTICARIA [None]
